FAERS Safety Report 19690399 (Version 3)
Quarter: 2021Q3

REPORT INFORMATION
  Report Type: Report from Study
  Country: US (occurrence: US)
  Receive Date: 20210812
  Receipt Date: 20210924
  Transmission Date: 20211014
  Serious: Yes (Other)
  Sender: FDA-Public Use
  Company Number: US-PFIZER INC-2021782753

PATIENT
  Age: 58 Year
  Sex: Female

DRUGS (2)
  1. LETROZOLE. [Concomitant]
     Active Substance: LETROZOLE
     Dosage: UNK
  2. IBRANCE [Suspect]
     Active Substance: PALBOCICLIB
     Indication: BREAST CANCER FEMALE
     Dosage: 125 MG, CYCLIC FOR 21 DAYS, 7 DAYS OFF
     Route: 048
     Dates: start: 20210620

REACTIONS (11)
  - Stomatitis [Unknown]
  - Dry skin [Recovered/Resolved]
  - Alopecia [Not Recovered/Not Resolved]
  - Hypoaesthesia [Unknown]
  - Constipation [Unknown]
  - Dysgeusia [Recovered/Resolved]
  - Pruritus [Unknown]
  - Neuropathy peripheral [Unknown]
  - Neutropenia [Recovered/Resolved]
  - Fatigue [Unknown]
  - Rash [Unknown]
